FAERS Safety Report 15417591 (Version 2)
Quarter: 2018Q4

REPORT INFORMATION
  Report Type: Spontaneous
  Country: DE (occurrence: DE)
  Receive Date: 20180924
  Receipt Date: 20181003
  Transmission Date: 20190204
  Serious: Yes (Other)
  Sender: FDA-Public Use
  Company Number: DE-BAYER-2018-173766

PATIENT
  Age: 48 Year
  Sex: Female

DRUGS (5)
  1. SYNACTEN [Concomitant]
     Active Substance: COSYNTROPIN HEXAACETATE
     Indication: CORTISOL DECREASED
  2. MIRENA [Suspect]
     Active Substance: LEVONORGESTREL
     Dosage: 20 MCG/24HR, CONT
     Route: 015
     Dates: start: 2010
  3. MIRENA [Suspect]
     Active Substance: LEVONORGESTREL
     Dosage: 20 MCG/24HR, CONT
     Route: 015
     Dates: start: 2016, end: 20180921
  4. MIRENA [Suspect]
     Active Substance: LEVONORGESTREL
     Dosage: 20 MCG/24HR, CONT
     Route: 015
     Dates: start: 2001
  5. MIRENA [Suspect]
     Active Substance: LEVONORGESTREL
     Dosage: 20 MCG/24HR, CONT
     Route: 015
     Dates: start: 2004

REACTIONS (24)
  - Blindness transient [Not Recovered/Not Resolved]
  - Adrenal insufficiency [Not Recovered/Not Resolved]
  - Headache [None]
  - Migraine [None]
  - Fatigue [Not Recovered/Not Resolved]
  - Food intolerance [Not Recovered/Not Resolved]
  - Histamine intolerance [Not Recovered/Not Resolved]
  - Panic attack [None]
  - Mood altered [None]
  - Stress [None]
  - Tension [None]
  - Extrasystoles [None]
  - Dizziness [Not Recovered/Not Resolved]
  - Feeling abnormal [Not Recovered/Not Resolved]
  - Nervousness [Recovered/Resolved]
  - Restlessness [None]
  - Palpitations [Recovered/Resolved]
  - Vision blurred [Not Recovered/Not Resolved]
  - Feeling cold [None]
  - Arrhythmia [Recovered/Resolved]
  - Apathy [Not Recovered/Not Resolved]
  - Nausea [Not Recovered/Not Resolved]
  - Sleep disorder [None]
  - Arthralgia [None]

NARRATIVE: CASE EVENT DATE: 2016
